FAERS Safety Report 5512750-4 (Version None)
Quarter: 2007Q4

REPORT INFORMATION
  Report Type: 
  Country: None (occurrence: None)
  Receive Date: 20071112
  Receipt Date: 20071102
  Transmission Date: 20080405
  Serious: Yes (Hospitalization)
  Sender: FDA-Public Use
  Company Number: JP-ASTRAZENECA-2007AP03730

PATIENT
  Age: 33217 Day
  Sex: Female
  Weight: 50 kg

DRUGS (27)
  1. CRESTOR [Suspect]
     Indication: HYPERLIPIDAEMIA
     Route: 048
     Dates: start: 20070531, end: 20070614
  2. RELIFEN [Suspect]
     Route: 048
     Dates: start: 20061201
  3. ALLEGRA [Suspect]
     Route: 048
     Dates: start: 20070531, end: 20070619
  4. SPIRIVA [Suspect]
     Indication: BRONCHITIS CHRONIC
     Route: 055
     Dates: start: 20070531
  5. ALMETA [Concomitant]
     Route: 003
     Dates: start: 20070531, end: 20070619
  6. ALDACTONE [Concomitant]
     Indication: CARDIAC FAILURE CONGESTIVE
     Route: 048
     Dates: start: 20061201
  7. FAMOTIDINE [Concomitant]
     Indication: GASTRITIS
     Route: 048
     Dates: start: 20061201
  8. SM [Concomitant]
     Route: 048
     Dates: start: 20061201
  9. ELIETEN [Concomitant]
     Route: 048
     Dates: start: 20061201
  10. LASIX [Concomitant]
     Indication: CARDIAC FAILURE CONGESTIVE
     Route: 048
     Dates: start: 20061201
  11. GOSHA-JINKI-GAN [Concomitant]
     Route: 048
     Dates: start: 20061201
  12. ACARDI [Concomitant]
     Indication: CARDIAC FAILURE CONGESTIVE
     Route: 048
     Dates: start: 20061201
  13. SOLON [Concomitant]
     Dosage: FINE GRAIN
     Route: 048
     Dates: start: 20061201
  14. NU-LOTAN [Concomitant]
     Indication: HYPERTENSION
     Route: 048
     Dates: start: 20061201
  15. BEZATOL SR [Concomitant]
     Indication: HYPERLIPIDAEMIA
     Route: 048
     Dates: start: 20061201, end: 20070614
  16. URALYT-U [Concomitant]
     Route: 048
     Dates: start: 20061201
  17. RESTAMIN [Concomitant]
     Route: 003
     Dates: start: 20070531, end: 20070619
  18. TRANSAMIN [Concomitant]
  19. HUSTAGIN [Concomitant]
  20. MEIACT [Concomitant]
  21. MOHRUS TAPE [Concomitant]
  22. UREPEARL [Concomitant]
  23. NITROPEN [Concomitant]
  24. BUSCOPAN [Concomitant]
  25. EPADEL S [Concomitant]
     Dates: start: 20061201, end: 20070530
  26. FRANDOL S [Concomitant]
  27. ANTIBIOTIC PREPARATIONS ACTING MAINLY ON GRAM POSITIVE BA [Concomitant]

REACTIONS (4)
  - ASTHMA [None]
  - BLOOD CREATINE PHOSPHOKINASE INCREASED [None]
  - BLOOD CREATININE INCREASED [None]
  - CARDIAC FAILURE [None]
